FAERS Safety Report 8892346 (Version 11)
Quarter: 2013Q4

REPORT INFORMATION
  Report Type: Spontaneous
  Country: US (occurrence: US)
  Receive Date: 20121107
  Receipt Date: 20131231
  Transmission Date: 20140711
  Serious: Yes (Death)
  Sender: FDA-Public Use
  Company Number: US-GLAXOSMITHKLINE-A0993940A

PATIENT
  Age: 58 Year
  Sex: Female

DRUGS (2)
  1. FLOLAN [Suspect]
     Indication: PULMONARY ARTERIAL HYPERTENSION
     Dosage: 35NGKM CONTINUOUS
     Route: 042
     Dates: start: 20060121
  2. REVATIO [Concomitant]

REACTIONS (18)
  - Renal cancer [Unknown]
  - Neoplasm malignant [Not Recovered/Not Resolved]
  - Clavicle fracture [Unknown]
  - Cervical vertebral fracture [Unknown]
  - Infusion site infection [Unknown]
  - Catheter site infection [Not Recovered/Not Resolved]
  - Urinary tract infection [Unknown]
  - Pharyngeal neoplasm [Unknown]
  - Infection [Not Recovered/Not Resolved]
  - Injection site erythema [Unknown]
  - Injection site pruritus [Unknown]
  - Infusion site erythema [Unknown]
  - Infusion site swelling [Unknown]
  - Catheter site pain [Unknown]
  - Catheter site inflammation [Unknown]
  - Catheter site discharge [Unknown]
  - Dermatitis contact [Unknown]
  - Death [Fatal]
